FAERS Safety Report 5008514-0 (Version None)
Quarter: 2006Q2

REPORT INFORMATION
  Report Type: 
  Country: None (occurrence: None)
  Receive Date: 20060522
  Receipt Date: 20060522
  Transmission Date: 20061013
  Serious: Yes (Hospitalization)
  Sender: FDA-Public Use
  Company Number: None

PATIENT
  Age: 84 Year
  Sex: Male
  Weight: 79 kg

DRUGS (16)
  1. WARFARIN SODIUM [Suspect]
     Indication: ATRIAL FIBRILLATION
     Dosage: 6MG/4MG   MO+TH/ROW    PO
     Route: 048
     Dates: start: 19990101, end: 20060520
  2. WARFARIN SODIUM [Suspect]
     Indication: CARDIAC VALVE DISEASE
     Dosage: 6MG/4MG   MO+TH/ROW    PO
     Route: 048
     Dates: start: 19990101, end: 20060520
  3. CELECOXIB     100MG [Suspect]
     Indication: OSTEOARTHRITIS
     Dosage: 100MG   BID   PO  6 1/2 YEARS
     Route: 048
     Dates: start: 19990830, end: 20060125
  4. CLOPIDOGREL [Concomitant]
  5. AMIODARONE [Concomitant]
  6. ATORVASTATIN CALCIUM [Concomitant]
  7. CITALOPRAM HYDROBROMIDE [Concomitant]
  8. CYANOCOBALAMIN [Concomitant]
  9. DIGOXIN [Concomitant]
  10. FERROUS SULFATE TAB [Concomitant]
  11. FUROSEMIDE [Concomitant]
  12. OMEPRAZOLE [Concomitant]
  13. LOSARTAN POTASSIUM [Concomitant]
  14. PRAMIPEXOLE [Concomitant]
  15. TRAZODONE HCL [Concomitant]
  16. IBUPROFEN [Concomitant]

REACTIONS (4)
  - FAECES DISCOLOURED [None]
  - FEELING ABNORMAL [None]
  - INTERNATIONAL NORMALISED RATIO INCREASED [None]
  - MELAENA [None]
